FAERS Safety Report 10565184 (Version 1)
Quarter: 2014Q4

REPORT INFORMATION
  Report Type: Spontaneous
  Country: FR (occurrence: None)
  Receive Date: 20141103
  Receipt Date: 20141103
  Transmission Date: 20150529
  Serious: Yes (Other)
  Sender: FDA-Public Use
  Company Number: NSR_01655_2014

PATIENT
  Age: 74 Year
  Sex: Female

DRUGS (6)
  1. PROPOFOL. [Concomitant]
     Active Substance: PROPOFOL
  2. DROPERIDOL. [Concomitant]
     Active Substance: DROPERIDOL
  3. SUFENTANIL [Concomitant]
     Active Substance: SUFENTANIL
  4. HYDROXYZINE [Suspect]
     Active Substance: HYDROXYZINE\HYDROXYZINE HYDROCHLORIDE
     Indication: PREMEDICATION
     Dosage: AT 8 PM
     Route: 048
  5. MIDAZOLAM [Concomitant]
     Active Substance: MIDAZOLAM\MIDAZOLAM HYDROCHLORIDE
  6. PRAMIPEXOLE [Concomitant]
     Active Substance: PRAMIPEXOLE

REACTIONS (4)
  - Tachycardia [None]
  - Systolic hypertension [None]
  - Serum ferritin decreased [None]
  - Subcutaneous haematoma [None]
